FAERS Safety Report 14962422 (Version 2)
Quarter: 2018Q3

REPORT INFORMATION
  Report Type: Spontaneous
  Country: CA (occurrence: CA)
  Receive Date: 20180601
  Receipt Date: 20180712
  Transmission Date: 20181010
  Serious: Yes (Other)
  Sender: FDA-Public Use
  Company Number: CA-REGENERON PHARMACEUTICALS, INC.-2018-22616

PATIENT

DRUGS (1)
  1. EYLEA [Suspect]
     Active Substance: AFLIBERCEPT
     Indication: NEOVASCULAR AGE-RELATED MACULAR DEGENERATION
     Dosage: UNK, Q3MON, TOTAL OF 3 EYLEA DOSES, LAST EYLEA PRIOR THE EVENT WAS RECEIVED ON 20?APR?2018
     Dates: start: 201409, end: 20180420

REACTIONS (3)
  - Endophthalmitis [Not Recovered/Not Resolved]
  - Inadequate aseptic technique in use of product [Unknown]
  - Blindness transient [Recovering/Resolving]

NARRATIVE: CASE EVENT DATE: 20180420
